FAERS Safety Report 5004126-3 (Version None)
Quarter: 2006Q2

REPORT INFORMATION
  Report Type: 
  Country: None (occurrence: None)
  Receive Date: 20060517
  Receipt Date: 20060117
  Transmission Date: 20061013
  Serious: Yes (Hospitalization)
  Sender: FDA-Public Use
  Company Number: JP-SP-2006-00133

PATIENT
  Age: 74 Year
  Sex: Male

DRUGS (2)
  1. IMMUCYST [Suspect]
     Indication: CARCINOMA IN SITU OF BLADDER
     Route: 043
     Dates: start: 20050928, end: 20051109
  2. TOSUFLOXACIN TOSILATE [Concomitant]
     Dosage: 3 TIMES/DAY
     Route: 048
     Dates: start: 20050928, end: 20050928

REACTIONS (3)
  - COUGH [None]
  - DISSEMINATED TUBERCULOSIS [None]
  - PYREXIA [None]
